FAERS Safety Report 18991289 (Version 1)
Quarter: 2021Q1

REPORT INFORMATION
  Report Type: Spontaneous
  Country: FR (occurrence: FR)
  Receive Date: 20210310
  Receipt Date: 20210310
  Transmission Date: 20210420
  Serious: Yes (Hospitalization, Other)
  Sender: FDA-Public Use
  Company Number: FR-ABBVIE-21K-056-3800938-00

PATIENT
  Age: 66 Year
  Sex: Male
  Weight: 58 kg

DRUGS (45)
  1. PRIMPERAN [Concomitant]
     Active Substance: METOCLOPRAMIDE HYDROCHLORIDE
     Indication: PRODUCT USED FOR UNKNOWN INDICATION
     Dosage: UNK
     Route: 065
  2. SPIRONOLACTONE. [Concomitant]
     Active Substance: SPIRONOLACTONE
     Indication: PRODUCT USED FOR UNKNOWN INDICATION
     Dosage: UNK
     Route: 065
  3. STELARA [Suspect]
     Active Substance: USTEKINUMAB
     Indication: PSORIASIS
     Dosage: 45 MG, Q4W
     Route: 058
     Dates: start: 20150514, end: 201506
  4. DUPHALAC [Concomitant]
     Active Substance: LACTULOSE
     Indication: PRODUCT USED FOR UNKNOWN INDICATION
     Dosage: UNK
     Route: 065
  5. ACUPAN [Concomitant]
     Active Substance: NEFOPAM HYDROCHLORIDE
     Indication: PRODUCT USED FOR UNKNOWN INDICATION
     Dosage: UNK
     Route: 065
  6. DAIVOBET [Concomitant]
     Active Substance: BETAMETHASONE DIPROPIONATE\CALCIPOTRIENE
     Dosage: UNK
     Route: 003
  7. KAYEXALATE [Concomitant]
     Active Substance: SODIUM POLYSTYRENE SULFONATE
     Indication: PRODUCT USED FOR UNKNOWN INDICATION
     Dosage: UNK
     Route: 065
     Dates: start: 20180812
  8. HUMIRA [Suspect]
     Active Substance: ADALIMUMAB
     Route: 058
     Dates: start: 201502, end: 20150504
  9. STELARA [Suspect]
     Active Substance: USTEKINUMAB
     Dosage: 45 MG, Q4W
     Route: 058
     Dates: start: 20150514, end: 20150611
  10. ENBREL [Suspect]
     Active Substance: ETANERCEPT
     Indication: PSORIASIS
     Dosage: 100 MG, QW
     Route: 058
     Dates: start: 20090211, end: 20090510
  11. LOCERYL [Concomitant]
     Active Substance: AMOROLFINE HYDROCHLORIDE
     Indication: PRODUCT USED FOR UNKNOWN INDICATION
     Dosage: UNK
     Route: 065
  12. FUROSEMIDE. [Concomitant]
     Active Substance: FUROSEMIDE
     Indication: PRODUCT USED FOR UNKNOWN INDICATION
     Dosage: UNK
     Route: 065
  13. METFORMINE [Concomitant]
     Active Substance: METFORMIN HYDROCHLORIDE
     Indication: PRODUCT USED FOR UNKNOWN INDICATION
     Dosage: UNK
     Route: 048
  14. SORIATANE [Suspect]
     Active Substance: ACITRETIN
     Indication: PSORIASIS
     Dosage: 25 MG, QD
     Route: 048
     Dates: start: 19911216, end: 200902
  15. ENBREL [Suspect]
     Active Substance: ETANERCEPT
     Route: 058
     Dates: start: 201602, end: 20160205
  16. METHOTREXATE. [Suspect]
     Active Substance: METHOTREXATE
     Indication: PSORIASIS
     Route: 048
  17. GLIMEPIRIDE. [Concomitant]
     Active Substance: GLIMEPIRIDE
     Indication: PRODUCT USED FOR UNKNOWN INDICATION
     Dosage: UNK
     Route: 048
  18. ENSTILAR [Concomitant]
     Active Substance: BETAMETHASONE DIPROPIONATE\CALCIPOTRIENE HYDRATE
     Indication: PRODUCT USED FOR UNKNOWN INDICATION
     Dosage: UNK
     Route: 065
  19. TIXTAR [Concomitant]
     Active Substance: RIFAXIMIN
     Indication: PRODUCT USED FOR UNKNOWN INDICATION
     Dosage: UNK
     Route: 065
  20. HUMIRA [Suspect]
     Active Substance: ADALIMUMAB
     Route: 058
     Dates: start: 20150212, end: 20150219
  21. STELARA [Suspect]
     Active Substance: USTEKINUMAB
     Dosage: 45 MG, (45 MG AT D1, D28 THEN EVERY 12 WEEKS)
     Route: 058
  22. COSENTYX [Suspect]
     Active Substance: SECUKINUMAB
     Indication: PSORIASIS
     Dosage: 300 MG, QW
     Route: 058
     Dates: start: 20171020, end: 20171117
  23. ENBREL [Suspect]
     Active Substance: ETANERCEPT
     Dosage: 50 MG, QW
     Route: 058
     Dates: start: 20091012, end: 200912
  24. LANTUS [Concomitant]
     Active Substance: INSULIN GLARGINE
     Indication: PRODUCT USED FOR UNKNOWN INDICATION
     Dosage: UNK
     Route: 065
  25. DEXERYL [Concomitant]
     Indication: PRODUCT USED FOR UNKNOWN INDICATION
     Dosage: UNK
     Route: 003
  26. TRIDESONIT [Concomitant]
     Active Substance: DESONIDE
     Indication: PRODUCT USED FOR UNKNOWN INDICATION
     Dosage: UNK
     Route: 065
  27. KAYEXALATE [Concomitant]
     Active Substance: SODIUM POLYSTYRENE SULFONATE
     Dosage: UNK
     Route: 065
  28. HUMIRA [Suspect]
     Active Substance: ADALIMUMAB
     Indication: PSORIASIS
     Dosage: 40 MG, (80 MG AT D1 THEN 40 MG)
     Route: 058
  29. STELARA [Suspect]
     Active Substance: USTEKINUMAB
     Dosage: 45 MG (EVERY 12 WEEKS))
     Route: 058
     Dates: start: 20150611, end: 20151102
  30. ENBREL [Suspect]
     Active Substance: ETANERCEPT
     Dosage: 50 MG, QW
     Route: 058
     Dates: start: 20160206, end: 20171002
  31. VOGALENE [Concomitant]
     Active Substance: METOPIMAZINE
     Indication: PRODUCT USED FOR UNKNOWN INDICATION
     Dosage: UNK
     Route: 065
  32. DAIVOBET [Concomitant]
     Active Substance: BETAMETHASONE DIPROPIONATE\CALCIPOTRIENE
     Indication: PRODUCT USED FOR UNKNOWN INDICATION
     Dosage: (1 OT QD)
     Route: 065
  33. STELARA [Suspect]
     Active Substance: USTEKINUMAB
     Dosage: 45 MG (EVERY 12 WEEKS))
     Route: 058
     Dates: start: 2015, end: 20151102
  34. COSENTYX [Suspect]
     Active Substance: SECUKINUMAB
     Dosage: 300 MG, Q4W
     Route: 058
     Dates: start: 20171117
  35. COSENTYX [Suspect]
     Active Substance: SECUKINUMAB
     Dosage: 300 MG, Q4W
     Route: 058
     Dates: end: 20180628
  36. ENBREL [Suspect]
     Active Substance: ETANERCEPT
     Dosage: 50 MG, QW
     Route: 058
     Dates: start: 20090511, end: 20090810
  37. ENBREL [Suspect]
     Active Substance: ETANERCEPT
     Dosage: 100 MG, QW
     Route: 058
     Dates: start: 20110502, end: 20110828
  38. LAMISIL [Concomitant]
     Active Substance: TERBINAFINE HYDROCHLORIDE
     Indication: PRODUCT USED FOR UNKNOWN INDICATION
     Dosage: UNK
     Route: 065
  39. PANTOPRAZOLE [Concomitant]
     Active Substance: PANTOPRAZOLE
     Indication: PRODUCT USED FOR UNKNOWN INDICATION
     Dosage: UNK
     Route: 065
  40. SPECIAFOLDINE [Concomitant]
     Active Substance: FOLIC ACID
     Indication: PRODUCT USED FOR UNKNOWN INDICATION
     Dosage: UNK
     Route: 065
  41. ENBREL [Suspect]
     Active Substance: ETANERCEPT
     Dosage: 50 MG, QW
     Route: 058
     Dates: start: 20110829, end: 20150205
  42. ENBREL [Suspect]
     Active Substance: ETANERCEPT
     Dosage: 100 MG, QW
     Route: 058
     Dates: start: 20151105, end: 201602
  43. NOVORAPID [Concomitant]
     Active Substance: INSULIN ASPART
     Indication: PRODUCT USED FOR UNKNOWN INDICATION
     Dosage: UNK
     Route: 065
  44. BETNEVAL [Concomitant]
     Active Substance: BETAMETHASONE VALERATE
     Indication: SKIN LESION
     Dosage: UNK
     Route: 065
  45. AMYCOR ONYCHOSET [Concomitant]
     Active Substance: BIFONAZOLE\UREA
     Indication: PRODUCT USED FOR UNKNOWN INDICATION
     Dosage: UNK
     Route: 050

REACTIONS (4)
  - Hepatocellular carcinoma [Not Recovered/Not Resolved]
  - Hepatic lesion [Recovering/Resolving]
  - Ascites [Recovering/Resolving]
  - Abdominal distension [Not Recovered/Not Resolved]

NARRATIVE: CASE EVENT DATE: 20180531
